FAERS Safety Report 7450160-3 (Version None)
Quarter: 2011Q2

REPORT INFORMATION
  Report Type: 
  Country: None (occurrence: None)
  Receive Date: 20110502
  Receipt Date: 20110415
  Transmission Date: 20111010
  Serious: Yes (Other)
  Sender: FDA-Public Use
  Company Number: ES-CELGENEUS-144-21880-11041999

PATIENT
  Age: 75 Year
  Sex: Male

DRUGS (2)
  1. DEXAMETHASONE [Concomitant]
     Dosage: 40 MILLIGRAM
     Route: 065
  2. REVLIMID [Suspect]
     Dosage: 25 MILLIGRAM
     Route: 048
     Dates: start: 20100201, end: 20110301

REACTIONS (4)
  - GENERAL PHYSICAL CONDITION ABNORMAL [None]
  - DRUG TOLERANCE DECREASED [None]
  - ERECTILE DYSFUNCTION [None]
  - ANAEMIA [None]
